FAERS Safety Report 13748993 (Version 1)
Quarter: 2017Q3

REPORT INFORMATION
  Report Type: Spontaneous
  Country: US (occurrence: US)
  Receive Date: 20170713
  Receipt Date: 20170713
  Transmission Date: 20171127
  Serious: No
  Sender: FDA-Public Use
  Company Number: US-PFIZER INC-2017299170

PATIENT
  Sex: Female

DRUGS (1)
  1. XELJANZ [Suspect]
     Active Substance: TOFACITINIB CITRATE
     Dosage: 5 MG, 2X/DAY

REACTIONS (8)
  - Hypoaesthesia [Unknown]
  - Hand deformity [Unknown]
  - Foot deformity [Unknown]
  - Pain [Not Recovered/Not Resolved]
  - Joint range of motion decreased [Unknown]
  - Arthralgia [Unknown]
  - Joint swelling [Unknown]
  - Peripheral coldness [Unknown]
